FAERS Safety Report 6028781-4 (Version None)
Quarter: 2009Q1

REPORT INFORMATION
  Report Type: 
  Country: None (occurrence: None)
  Receive Date: 20090106
  Receipt Date: 20081229
  Transmission Date: 20090719
  Serious: Yes (Hospitalization)
  Sender: FDA-Public Use
  Company Number: B0550113A

PATIENT
  Age: 54 Year
  Sex: Male

DRUGS (3)
  1. PAXIL [Suspect]
     Indication: DEPRESSION
     Dates: start: 20030101, end: 20081208
  2. VOLTAREN [Concomitant]
     Indication: HEADACHE
     Route: 048
     Dates: start: 20080929
  3. MUCOSTA [Concomitant]
     Route: 048

REACTIONS (1)
  - SUBDURAL HAEMATOMA [None]
